FAERS Safety Report 23515070 (Version 1)
Quarter: 2024Q1

REPORT INFORMATION
  Report Type: Other
  Country: US (occurrence: US)
  Receive Date: 20240212
  Receipt Date: 20240212
  Transmission Date: 20240409
  Serious: No
  Sender: FDA-Public Use
  Company Number: US-TRAVERE-2024TVT00107

PATIENT
  Age: 29 Year
  Sex: Female

DRUGS (28)
  1. CHOLBAM [Suspect]
     Active Substance: CHOLIC ACID
     Indication: Smith-Lemli-Opitz syndrome
     Route: 048
     Dates: start: 20220306
  2. TACROLIMUS [Suspect]
     Active Substance: TACROLIMUS
     Indication: Product used for unknown indication
  3. ATROPINE [Concomitant]
     Active Substance: ATROPINE\ATROPINE SULFATE
  4. CHLORHEXIDINE [Concomitant]
     Active Substance: CHLORHEXIDINE\CHLORHEXIDINE GLUCONATE
  5. cholesterol relief [Concomitant]
  6. CLARITIN [Concomitant]
     Active Substance: LORATADINE
  7. CRANBERRY [Concomitant]
     Active Substance: CRANBERRY
  8. CYCLOBENZAPRINE [Concomitant]
     Active Substance: CYCLOBENZAPRINE
  9. DEPLIN [Concomitant]
     Active Substance: LEVOMEFOLATE CALCIUM
  10. FLOVENT [Concomitant]
     Active Substance: FLUTICASONE PROPIONATE
  11. FLUOXETINE [Concomitant]
     Active Substance: FLUOXETINE HYDROCHLORIDE
  12. GLUCOSAMINE [Concomitant]
     Active Substance: GLUCOSAMINE
  13. HUMIRA [Concomitant]
     Active Substance: ADALIMUMAB
  14. HYDROXYZINE [Concomitant]
     Active Substance: HYDROXYZINE HYDROCHLORIDE
  15. LO LOESTRIN FE [Concomitant]
     Active Substance: ETHINYL ESTRADIOL\NORETHINDRONE ACETATE
  16. MELOXICAM [Concomitant]
     Active Substance: MELOXICAM
  17. METHOCARBAMOL [Concomitant]
     Active Substance: METHOCARBAMOL
  18. DIETARY SUPPLEMENT\HERBALS\MILK THISTLE [Concomitant]
     Active Substance: MILK THISTLE
  19. MYLANTA [Concomitant]
     Active Substance: ALUMINUM HYDROXIDE\DIMETHICONE\MAGNESIUM HYDROXIDE
  20. nanoVM [Concomitant]
  21. PREDNISOLONE [Concomitant]
     Active Substance: PREDNISOLONE
  22. PREVACID [Concomitant]
     Active Substance: LANSOPRAZOLE
  23. PROBIOTICS NOS [Concomitant]
     Active Substance: PROBIOTICS NOS
  24. SYSTANE (HYPROMELLOSE 2910 (4000 MPA.S)) [Concomitant]
     Active Substance: HYPROMELLOSE 2910 (4000 MPA.S)
  25. TOBRADEX [Concomitant]
     Active Substance: DEXAMETHASONE\TOBRAMYCIN
  26. HERBALS\TURMERIC [Concomitant]
     Active Substance: HERBALS\TURMERIC
  27. TYLENOL [Concomitant]
     Active Substance: ACETAMINOPHEN
  28. VIGAMOX [Concomitant]
     Active Substance: MOXIFLOXACIN HYDROCHLORIDE

REACTIONS (2)
  - Hypertension [Unknown]
  - Diarrhoea [Unknown]
